FAERS Safety Report 15603418 (Version 4)
Quarter: 2019Q2

REPORT INFORMATION
  Report Type: Spontaneous
  Country: US (occurrence: US)
  Receive Date: 20181109
  Receipt Date: 20190626
  Transmission Date: 20190711
  Serious: Yes (Death)
  Sender: FDA-Public Use
  Company Number: US-ACTELION-A-NJ2018-181446

PATIENT
  Age: 84 Year
  Sex: Male
  Weight: 72.56 kg

DRUGS (2)
  1. TRACLEER [Suspect]
     Active Substance: BOSENTAN
     Indication: PULMONARY HYPERTENSION
     Dosage: 125 MG, BID
     Route: 048
  2. COUMADIN [Concomitant]
     Active Substance: WARFARIN SODIUM

REACTIONS (4)
  - Pulmonary hypertension [Fatal]
  - Pulmonary embolism [Fatal]
  - Pneumonia [Fatal]
  - Tooth extraction [Unknown]

NARRATIVE: CASE EVENT DATE: 20181030
